FAERS Safety Report 20562149 (Version 1)
Quarter: 2022Q1

REPORT INFORMATION
  Report Type: Spontaneous
  Country: BG (occurrence: None)
  Receive Date: 20220307
  Receipt Date: 20220307
  Transmission Date: 20220423
  Serious: Yes (Other)
  Sender: FDA-Public Use
  Company Number: 2022A102959

PATIENT
  Age: 72 Year
  Sex: Male

DRUGS (2)
  1. ACLIDINIUM BROMIDE\FORMOTEROL FUMARATE [Suspect]
     Active Substance: ACLIDINIUM BROMIDE\FORMOTEROL FUMARATE
     Indication: Chronic obstructive pulmonary disease
     Dosage: 340 MCG/12 MCG 2X1 INHALATION DAILY
     Route: 055
     Dates: start: 2019, end: 202103
  2. ALBUTEROL [Concomitant]
     Active Substance: ALBUTEROL
     Dosage: 100 MCG X 2 INHALATIONS DAILY
     Route: 065

REACTIONS (2)
  - Chronic obstructive pulmonary disease [Not Recovered/Not Resolved]
  - Drug ineffective [Unknown]
